FAERS Safety Report 24140170 (Version 2)
Quarter: 2024Q3

REPORT INFORMATION
  Report Type: Report from Study
  Country: US (occurrence: US)
  Receive Date: 20240726
  Receipt Date: 20240905
  Transmission Date: 20241016
  Serious: Yes (Other)
  Sender: ACADIA PHARMACEUTICALS
  Company Number: US-ACADIA PHARMACEUTICALS INC.-ACA-2024-TRF-003091

PATIENT
  Age: 28 Year
  Sex: Female

DRUGS (1)
  1. DAYBUE [Suspect]
     Active Substance: TROFINETIDE
     Indication: Rett syndrome
     Dosage: 40 MILLILITER, BID
     Dates: start: 20230816

REACTIONS (5)
  - Serratia infection [Recovered/Resolved]
  - Medical device site infection [Recovered/Resolved]
  - Prescribed underdose [Not Recovered/Not Resolved]
  - Central venous catheterisation [Unknown]
  - Medical device site infection [Recovered/Resolved]

NARRATIVE: CASE EVENT DATE: 20240701
